FAERS Safety Report 14277885 (Version 4)
Quarter: 2019Q2

REPORT INFORMATION
  Report Type: Spontaneous
  Country: US (occurrence: US)
  Receive Date: 20171212
  Receipt Date: 20190409
  Transmission Date: 20190711
  Serious: Yes (Other)
  Sender: FDA-Public Use
  Company Number: US-BAUSCH-BL-2017-020633

PATIENT
  Sex: Female

DRUGS (3)
  1. SYPRINE [Suspect]
     Active Substance: TRIENTINE HYDROCHLORIDE
     Indication: HEPATO-LENTICULAR DEGENERATION
     Dosage: 250 MG CAPSULES, 2 CAPSULES 2 TIMES A DAY
     Route: 048
     Dates: start: 1986
  2. LASIX [Concomitant]
     Active Substance: FUROSEMIDE
     Indication: FLUID RETENTION
  3. SYPRINE [Suspect]
     Active Substance: TRIENTINE HYDROCHLORIDE
     Dosage: SOMETIME TAKE SYPRINE ALL AT NIGHT TIME IF FORGETS MORNING DOSE/SOMETIMES TAKE 4 CAPSULES AT ONCE
     Route: 048

REACTIONS (14)
  - Depression [Unknown]
  - Gallbladder disorder [Unknown]
  - Latent autoimmune diabetes in adults [Not Recovered/Not Resolved]
  - Splenomegaly [Unknown]
  - Platelet count decreased [Unknown]
  - Bronchitis [Unknown]
  - Product storage error [Unknown]
  - Hepatic cirrhosis [Unknown]
  - Ill-defined disorder [Unknown]
  - Product dose omission [Unknown]
  - Disease progression [Unknown]
  - Liver disorder [Unknown]
  - Therapeutic response unexpected [Unknown]
  - Inappropriate schedule of product administration [Unknown]

NARRATIVE: CASE EVENT DATE: 2004
